FAERS Safety Report 13534479 (Version 1)
Quarter: 2017Q2

REPORT INFORMATION
  Report Type: Spontaneous
  Country: US (occurrence: US)
  Receive Date: 20170510
  Receipt Date: 20170510
  Transmission Date: 20170830
  Serious: No
  Sender: FDA-Public Use
  Company Number: None

PATIENT
  Age: 53 Year
  Sex: Male

DRUGS (1)
  1. INFLIXIMAB 100MG JANSSEN BIOTECH [Suspect]
     Active Substance: INFLIXIMAB
     Indication: COLITIS ULCERATIVE
     Dosage: 450 MG Q6WKS IV
     Route: 042
     Dates: start: 201301

REACTIONS (4)
  - Chills [None]
  - Pruritus [None]
  - Tremor [None]
  - Infusion related reaction [None]

NARRATIVE: CASE EVENT DATE: 20170508
